FAERS Safety Report 17629387 (Version 2)
Quarter: 2020Q2

REPORT INFORMATION
  Report Type: Report from Study
  Country: CO (occurrence: CO)
  Receive Date: 20200406
  Receipt Date: 20200427
  Transmission Date: 20200713
  Serious: Yes (Hospitalization, Other)
  Sender: FDA-Public Use
  Company Number: CO-ASTELLAS-2018US034413

PATIENT
  Age: 36 Year
  Sex: Male

DRUGS (8)
  1. TACROLIMUS. [Suspect]
     Active Substance: TACROLIMUS
     Indication: RENAL TRANSPLANT
     Dosage: 8 MG, ONCE DAILY (1 CAPSULE OF 5 MG AND 3 CAPSULE OF 1 MG)
     Route: 048
     Dates: start: 20180626
  2. TACROLIMUS. [Suspect]
     Active Substance: TACROLIMUS
     Dosage: 2 MG, ONCE DAILY (2 CAPSULE OF 1 MG)
     Route: 048
  3. TACROLIMUS. [Suspect]
     Active Substance: TACROLIMUS
     Dosage: 4 MG, ONCE DAILY (4 CAPSULE OF 1 MG)
     Route: 048
     Dates: start: 20190510
  4. CLONIDINE. [Concomitant]
     Active Substance: CLONIDINE
     Indication: HYPERTENSION
     Route: 048
  5. TACROLIMUS. [Suspect]
     Active Substance: TACROLIMUS
     Dosage: 4 MG, ONCE DAILY(4 CAPSULES OF 1MG )
     Route: 048
     Dates: start: 20200310
  6. PRAZOSIN. [Concomitant]
     Active Substance: PRAZOSIN
     Indication: HYPERTENSION
     Route: 048
  7. TACROLIMUS. [Suspect]
     Active Substance: TACROLIMUS
     Dosage: 3 MG, ONCE DAILY(3 CAPSULES OF 1MG )
     Route: 048
     Dates: end: 20200309
  8. AZATHIOPRINE. [Suspect]
     Active Substance: AZATHIOPRINE
     Indication: PRODUCT USED FOR UNKNOWN INDICATION
     Dosage: UNK UNK, UNKNOWN FREQ.
     Route: 065

REACTIONS (13)
  - Vomiting [Recovered/Resolved]
  - Bone marrow failure [Recovering/Resolving]
  - Pyrexia [Recovered/Resolved]
  - Chills [Recovered/Resolved]
  - Urinary tract infection [Recovered/Resolved]
  - Kidney infection [Recovering/Resolving]
  - Urinary tract infection [Recovered/Resolved with Sequelae]
  - Diarrhoea [Recovered/Resolved]
  - White blood cell count decreased [Recovering/Resolving]
  - Abdominal distension [Unknown]
  - Haemoglobin decreased [Recovering/Resolving]
  - Blood creatinine increased [Recovered/Resolved]
  - Platelet count decreased [Recovering/Resolving]

NARRATIVE: CASE EVENT DATE: 20180701
